FAERS Safety Report 11446738 (Version 1)
Quarter: 2015Q3

REPORT INFORMATION
  Report Type: Spontaneous
  Country: US (occurrence: US)
  Receive Date: 20150831
  Receipt Date: 20150831
  Transmission Date: 20151125
  Serious: No
  Sender: FDA-Public Use
  Company Number: US-ELI_LILLY_AND_COMPANY-US200811002328

PATIENT
  Age: 40 Year
  Sex: Female

DRUGS (3)
  1. CYMBALTA [Suspect]
     Active Substance: DULOXETINE HYDROCHLORIDE
     Indication: DEPRESSION
     Dosage: 60 MG, DAILY (1/D)
  2. CYMBALTA [Suspect]
     Active Substance: DULOXETINE HYDROCHLORIDE
     Dosage: 30 MG, QOD
     Dates: end: 20081106
  3. CYMBALTA [Suspect]
     Active Substance: DULOXETINE HYDROCHLORIDE
     Dosage: 30 MG, DAILY (1/D)

REACTIONS (6)
  - Dizziness [Unknown]
  - Blood pressure increased [Recovered/Resolved]
  - Drug withdrawal syndrome [Unknown]
  - Night sweats [Recovered/Resolved]
  - Influenza like illness [Unknown]
  - Paraesthesia [Unknown]

NARRATIVE: CASE EVENT DATE: 200811
